FAERS Safety Report 13956630 (Version 1)
Quarter: 2017Q3

REPORT INFORMATION
  Report Type: Spontaneous
  Country: HR (occurrence: HR)
  Receive Date: 20170911
  Receipt Date: 20170911
  Transmission Date: 20171128
  Serious: Yes (Disabling)
  Sender: FDA-Public Use
  Company Number: HR-ROCHE-1990787

PATIENT
  Age: 63 Year
  Sex: Male

DRUGS (1)
  1. ROACTEMRA [Suspect]
     Active Substance: TOCILIZUMAB
     Indication: RHEUMATOID ARTHRITIS
     Dosage: NO
     Route: 042
     Dates: start: 20151125, end: 20170630

REACTIONS (2)
  - Lung neoplasm malignant [Not Recovered/Not Resolved]
  - Metastases to liver [Unknown]

NARRATIVE: CASE EVENT DATE: 20170701
